FAERS Safety Report 4335283-X (Version None)
Quarter: 2004Q2

REPORT INFORMATION
  Report Type: 
  Country: None (occurrence: None)
  Receive Date: 20040406
  Receipt Date: 20040101
  Transmission Date: 20050107
  Serious: Yes (Other)
  Sender: FDA-Public Use
  Company Number: 352661

PATIENT
  Age: 40 Year
  Sex: Male
  Weight: 83.9 kg

DRUGS (1)
  1. FUZEON [Suspect]
     Indication: DRUG USE FOR UNKNOWN INDICATION
     Dosage: 90 MG  2 PER DAY  SUBCUTANEOUS
     Route: 058
     Dates: start: 20031104

REACTIONS (6)
  - ABDOMINAL DISCOMFORT [None]
  - DYSPNOEA [None]
  - INJECTION SITE REACTION [None]
  - MEDICATION ERROR [None]
  - MOVEMENT DISORDER [None]
  - NO ADVERSE EFFECT [None]
